FAERS Safety Report 4673000-4 (Version None)
Quarter: 2005Q2

REPORT INFORMATION
  Report Type: 
  Country: None (occurrence: None)
  Receive Date: 20050523
  Receipt Date: 20050516
  Transmission Date: 20051028
  Serious: Yes (Other)
  Sender: FDA-Public Use
  Company Number: 2005073993

PATIENT
  Age: 74 Year
  Sex: Male

DRUGS (3)
  1. CARDYL (ATORVASTATIN) [Suspect]
     Indication: HYPERCHOLESTEROLAEMIA
     Dosage: 10 M G (10 MG, 1 IN 1 D), ORAL
     Route: 048
     Dates: start: 20020101
  2. RAMIPRIL [Suspect]
     Indication: HYPERTENSION
     Dosage: 2.5 MG (2.5 MG, 1 IN 1 D), ORAL
     Route: 048
     Dates: start: 19990101
  3. HIGROTONA (CHLORTALIDONE) [Suspect]
     Indication: HYPERTENSION
     Dosage: 25 MG (50 MG, DAILY), ORAL
     Route: 048
     Dates: start: 19990101

REACTIONS (1)
  - TENDON RUPTURE [None]
